FAERS Safety Report 5497126-0 (Version None)
Quarter: 2007Q4

REPORT INFORMATION
  Report Type: 
  Country: None (occurrence: None)
  Receive Date: 20071023
  Receipt Date: 20071012
  Transmission Date: 20080405
  Serious: Yes (Other)
  Sender: FDA-Public Use
  Company Number: 2007090024

PATIENT
  Age: 31 Year
  Sex: Female

DRUGS (3)
  1. ASTELIN [Suspect]
     Indication: RHINITIS ALLERGIC
     Dosage: 1096 MCG (548 MCG, 2 IN 1 D), IN
     Dates: start: 20060909, end: 20070908
  2. ASTELIN [Suspect]
     Indication: VASOMOTOR RHINITIS
     Dosage: 1096 MCG (548 MCG, 2 IN 1 D), IN
     Dates: start: 20060909, end: 20070908
  3. LEVONORGESTREL AND ETHINYL ESTRADIOL [Concomitant]

REACTIONS (5)
  - ABORTION SPONTANEOUS [None]
  - DRUG EXPOSURE DURING PREGNANCY [None]
  - FOETAL HEART RATE ABNORMAL [None]
  - INTRA-UTERINE DEATH [None]
  - PREGNANCY [None]
